FAERS Safety Report 6032918-0 (Version None)
Quarter: 2009Q1

REPORT INFORMATION
  Report Type: 
  Country: None (occurrence: None)
  Receive Date: 20090107
  Receipt Date: 20090107
  Transmission Date: 20090719
  Serious: Yes (Hospitalization, Other)
  Sender: FDA-Public Use
  Company Number: None

PATIENT
  Age: 26 Year
  Sex: Male
  Weight: 81.6475 kg

DRUGS (3)
  1. RAPTIVA [Suspect]
     Indication: PSORIASIS
     Dosage: .08MCG? ONCE PER WK EACH SUNDAY IM
     Route: 030
     Dates: start: 20040401, end: 20081101
  2. RAPTIVA [Suspect]
     Indication: PSORIATIC ARTHROPATHY
     Dosage: .08MCG? ONCE PER WK EACH SUNDAY IM
     Route: 030
     Dates: start: 20040401, end: 20081101
  3. RAPTIVA [Concomitant]

REACTIONS (9)
  - ANOGENITAL WARTS [None]
  - CONDITION AGGRAVATED [None]
  - INFREQUENT BOWEL MOVEMENTS [None]
  - LOSS OF EMPLOYMENT [None]
  - PAPILLOMA VIRAL INFECTION [None]
  - PSORIASIS [None]
  - PSORIATIC ARTHROPATHY [None]
  - SKIN PAPILLOMA [None]
  - URETHRAL PAPILLOMA [None]
